FAERS Safety Report 9520006 (Version 1)
Quarter: 2013Q1

REPORT INFORMATION
  Report Type: Spontaneous
  Country: US (occurrence: None)
  Receive Date: 20130305
  Receipt Date: 20130305
  Transmission Date: 20140127
  Serious: Yes (Other)
  Sender: FDA-Public Use
  Company Number: 163-21880-11122273

PATIENT
  Age: 69 Year
  Sex: Male

DRUGS (9)
  1. REVLIMID (LENALIDOMIDE) (CAPSULES) [Suspect]
     Indication: PLASMA CELL MYELOMA
     Route: 048
     Dates: start: 20110912
  2. HYDROCHLOROTHIAZIDE (HYDROCHLOROTHIAZIDE) [Concomitant]
  3. VITAMIN B-6 (PYRIDOXINE HYDROCHLORIDE) [Concomitant]
  4. ALPHA LIPOIC ACID (THIOTIC ACID) [Concomitant]
  5. L CARNITIDINE (LEVOCARNITINE HYDROCHLORIDE) [Concomitant]
  6. ACYCLOVIR (ACICLOVIR) (ACICLOVIR) [Concomitant]
  7. XANAX (ALPRAZOLAM) [Concomitant]
  8. DAPSONE (DAPSONE) [Concomitant]
  9. LANTUS SOLOSTAR (INSULIN GLARGINE) [Concomitant]

REACTIONS (1)
  - Rash pruritic [None]
